FAERS Safety Report 4376750-2 (Version None)
Quarter: 2004Q2

REPORT INFORMATION
  Report Type: 
  Country: None (occurrence: None)
  Receive Date: 20040609
  Receipt Date: 20040428
  Transmission Date: 20050107
  Serious: Yes (Hospitalization)
  Sender: FDA-Public Use
  Company Number: 2004203060US

PATIENT
  Sex: Female

DRUGS (6)
  1. BEXTRA [Suspect]
     Indication: RHEUMATOID ARTHRITIS
     Dosage: 10 MG, BID
     Dates: start: 20040308
  2. PREDNISONE [Concomitant]
  3. FERROUS SULFATE TAB [Concomitant]
  4. AVAPRO [Concomitant]
  5. LORTAB [Concomitant]
  6. ASPIRIN [Concomitant]

REACTIONS (1)
  - DRUG INEFFECTIVE [None]
